FAERS Safety Report 8211480-8 (Version None)
Quarter: 2012Q1

REPORT INFORMATION
  Report Type: 
  Country: None (occurrence: None)
  Receive Date: 20120315
  Receipt Date: 20120307
  Transmission Date: 20120608
  Serious: Yes (Other)
  Sender: FDA-Public Use
  Company Number: GB-PFIZER INC-2012061782

PATIENT
  Age: 41 Year
  Sex: Female

DRUGS (2)
  1. METHYLPREDNISOLONE [Suspect]
     Indication: HYPOAESTHESIA
     Dosage: 500 MG, UNK
     Route: 048
  2. METHYLPEDNISOLONE SODIUM SUCCINATE [Suspect]
     Indication: HYPOAESTHESIA
     Dosage: 500 MG, UNK
     Route: 048

REACTIONS (7)
  - INCORRECT ROUTE OF DRUG ADMINISTRATION [None]
  - EUPHORIC MOOD [None]
  - HALLUCINATION [None]
  - CONVULSION [None]
  - HEADACHE [None]
  - MUSCLE RIGIDITY [None]
  - HYPERHIDROSIS [None]
